FAERS Safety Report 18493554 (Version 2)
Quarter: 2021Q1

REPORT INFORMATION
  Report Type: Spontaneous
  Country: US (occurrence: US)
  Receive Date: 20201111
  Receipt Date: 20210210
  Transmission Date: 20210419
  Serious: No
  Sender: FDA-Public Use
  Company Number: US-SA-2020SA315117

PATIENT
  Sex: Female

DRUGS (1)
  1. DUPIXENT [Suspect]
     Active Substance: DUPILUMAB
     Indication: ASTHMA
     Dosage: 300 MG, QOW
     Route: 058

REACTIONS (6)
  - Oral herpes [Recovered/Resolved]
  - Drug effect less than expected [Unknown]
  - Product use issue [Unknown]
  - Respiratory tract congestion [Unknown]
  - Chest discomfort [Recovered/Resolved]
  - Dyspnoea [Unknown]
